FAERS Safety Report 9226061 (Version 1)
Quarter: 2013Q2

REPORT INFORMATION
  Report Type: Spontaneous
  Country: IT (occurrence: IT)
  Receive Date: 20130411
  Receipt Date: 20130411
  Transmission Date: 20140414
  Serious: Yes (Hospitalization)
  Sender: FDA-Public Use
  Company Number: IT-TEVA-397149ISR

PATIENT
  Age: 7 Year
  Sex: Female

DRUGS (7)
  1. LEVOFLOXACIN [Suspect]
     Indication: TUBERCULOSIS
     Dosage: 250 MILLIGRAM DAILY;
     Route: 048
     Dates: start: 20130206, end: 20130226
  2. LEVOFLOXACIN [Suspect]
     Dosage: 250 MILLIGRAM DAILY;
     Route: 048
     Dates: start: 20130303
  3. TRECATOR [Suspect]
     Indication: TUBERCULOSIS
     Dosage: 500 MILLIGRAM DAILY;
     Route: 048
     Dates: start: 20130206, end: 20130226
  4. TRECATOR [Suspect]
     Dosage: 500 MILLIGRAM DAILY;
     Route: 048
     Dates: start: 20130303
  5. PIRALDINA [Concomitant]
     Indication: TUBERCULOSIS
     Dosage: 500 MILLIGRAM DAILY;
     Route: 048
     Dates: start: 20130206, end: 20130226
  6. ETAPIAM [Concomitant]
     Indication: TUBERCULOSIS
     Dosage: 400 MILLIGRAM DAILY;
     Route: 048
     Dates: start: 20130206, end: 20130226
  7. TERIZIDON [Concomitant]
     Indication: TUBERCULOSIS
     Dosage: 2 DOSAGE FORMS DAILY;
     Route: 048
     Dates: start: 20130206, end: 20130226

REACTIONS (5)
  - Urticaria [Recovered/Resolved]
  - Conjunctivitis [Recovered/Resolved]
  - Vomiting [Recovered/Resolved]
  - Pruritus [Recovered/Resolved]
  - Hyperaemia [Recovered/Resolved]
